FAERS Safety Report 5662397-4 (Version None)
Quarter: 2008Q1

REPORT INFORMATION
  Report Type: 
  Country: None (occurrence: None)
  Receive Date: 20080313
  Receipt Date: 20080229
  Transmission Date: 20080703
  Serious: Yes (Hospitalization)
  Sender: FDA-Public Use
  Company Number: CA-BAYER-200815739NA

PATIENT
  Age: 84 Year
  Sex: Male
  Weight: 57 kg

DRUGS (2)
  1. SORAFENIB [Suspect]
     Indication: PROSTATE CANCER
     Dosage: UNIT DOSE: 200 MG
     Route: 048
     Dates: start: 20080214, end: 20080217
  2. BICALUTAMIDE [Suspect]
     Indication: PROSTATE CANCER
     Dosage: AS USED: 50 MG
     Route: 048
     Dates: start: 20080214, end: 20080217

REACTIONS (3)
  - FATIGUE [None]
  - HYPOTENSION [None]
  - RASH MACULO-PAPULAR [None]
